FAERS Safety Report 8423662-0 (Version None)
Quarter: 2012Q2

REPORT INFORMATION
  Report Type: 
  Country: None (occurrence: None)
  Receive Date: 20120608
  Receipt Date: 20120606
  Transmission Date: 20120825
  Serious: Yes (Other)
  Sender: FDA-Public Use
  Company Number: PHHY2012GB048385

PATIENT
  Age: 84 Year
  Sex: Male

DRUGS (8)
  1. TAMSULOSIN HCL [Suspect]
     Indication: URINARY TRACT DISORDER
     Dosage: 400 MG, QD
     Route: 048
     Dates: start: 20120501, end: 20120515
  2. ASPIRIN [Concomitant]
     Indication: MYOCARDIAL INFARCTION
     Dosage: 75 MG, QD
     Route: 048
     Dates: start: 20010101
  3. SIMVASTATIN [Concomitant]
     Indication: MYOCARDIAL INFARCTION
     Dosage: 10 MG, QD
     Route: 048
     Dates: start: 20010101
  4. TOLTERODINE TARTRATE [Suspect]
     Indication: URINARY TRACT DISORDER
     Dosage: 4 MG, QD
     Route: 048
     Dates: start: 20111110, end: 20120312
  5. VESICARE [Suspect]
     Dosage: 10 MG
  6. BISOPROLOL FUMARATE [Concomitant]
     Indication: MYOCARDIAL INFARCTION
     Dosage: 5 MG
     Route: 048
     Dates: start: 20040101
  7. VESICARE [Suspect]
     Indication: URINARY TRACT DISORDER
     Dosage: 5 MG, BID
     Route: 048
     Dates: start: 20120501, end: 20120513
  8. RAMIPRIL [Concomitant]
     Indication: MYOCARDIAL INFARCTION
     Dosage: 10 MG, QD
     Route: 048
     Dates: start: 20010101

REACTIONS (4)
  - FALL [None]
  - CONFUSIONAL STATE [None]
  - SINUS CONGESTION [None]
  - DISORIENTATION [None]
